FAERS Safety Report 12231888 (Version 3)
Quarter: 2016Q2

REPORT INFORMATION
  Report Type: Spontaneous
  Country: US (occurrence: US)
  Receive Date: 20160401
  Receipt Date: 20160602
  Transmission Date: 20160815
  Serious: Yes (Death, Other)
  Sender: FDA-Public Use
  Company Number: US-EXELIXIS-CABO-13003742

PATIENT
  Age: 77 Year
  Sex: Female
  Weight: 65.7 kg

DRUGS (14)
  1. LOPERAMIDE [Concomitant]
     Active Substance: LOPERAMIDE
  2. COMETRIQ [Suspect]
     Active Substance: CABOZANTINIB S-MALATE
     Indication: THYROID CANCER
     Dosage: 100 MG, QD
     Route: 048
     Dates: start: 20131130, end: 20140520
  3. ATENOLOL. [Concomitant]
     Active Substance: ATENOLOL
  4. ASACOL [Concomitant]
     Active Substance: MESALAMINE
  5. COMETRIQ [Suspect]
     Active Substance: CABOZANTINIB S-MALATE
     Dosage: 80 MG, QD
     Route: 048
     Dates: start: 20150430, end: 201507
  6. COMETRIQ [Suspect]
     Active Substance: CABOZANTINIB S-MALATE
     Dosage: 80 MG, QOD
     Route: 048
     Dates: start: 201507
  7. LEVOTHYROXINE. [Concomitant]
     Active Substance: LEVOTHYROXINE
  8. COMETRIQ [Suspect]
     Active Substance: CABOZANTINIB S-MALATE
     Dosage: 80 MG, QD
     Route: 048
     Dates: start: 20150121, end: 2015
  9. COMETRIQ [Suspect]
     Active Substance: CABOZANTINIB S-MALATE
     Dosage: 80 MG, QOD
     Route: 048
     Dates: start: 20150330, end: 2015
  10. LISINOPRIL. [Concomitant]
     Active Substance: LISINOPRIL
  11. CYANOCOBALAMIN. [Concomitant]
     Active Substance: CYANOCOBALAMIN
  12. IBUPROFEN. [Concomitant]
     Active Substance: IBUPROFEN
  13. BUDESONIDE. [Concomitant]
     Active Substance: BUDESONIDE
  14. TRAMADOL. [Concomitant]
     Active Substance: TRAMADOL

REACTIONS (13)
  - Malignant neoplasm progression [Unknown]
  - Fatigue [Unknown]
  - Muscle spasms [Unknown]
  - Hypokinesia [Unknown]
  - Malaise [Unknown]
  - Diarrhoea [Not Recovered/Not Resolved]
  - Decreased activity [Unknown]
  - Ruptured cerebral aneurysm [Fatal]
  - Dyspnoea [Recovering/Resolving]
  - Asthenia [Unknown]
  - Palmar erythema [Unknown]
  - Metastases to central nervous system [Unknown]
  - Dysphonia [Unknown]

NARRATIVE: CASE EVENT DATE: 20131210
